FAERS Safety Report 22276006 (Version 1)
Quarter: 2023Q2

REPORT INFORMATION
  Report Type: Spontaneous
  Country: US (occurrence: None)
  Receive Date: 20230501
  Receipt Date: 20230501
  Transmission Date: 20230721
  Serious: No
  Sender: FDA-Public Use
  Company Number: None

PATIENT
  Age: 59 Year
  Sex: Male
  Weight: 94.5 kg

DRUGS (11)
  1. TESTOSTERONE CYPIONATE [Suspect]
     Active Substance: TESTOSTERONE CYPIONATE
     Indication: Lyme disease
     Dosage: OTHER QUANTITY : 2 INJECTION(S);?OTHER FREQUENCY : TWICE A WEEK;?
     Route: 030
  2. CELEXA [Concomitant]
     Active Substance: CITALOPRAM HYDROBROMIDE
  3. TRELEGY ELLIPTA [Concomitant]
     Active Substance: FLUTICASONE FUROATE\UMECLIDINIUM BROMIDE\VILANTEROL TRIFENATATE
  4. MODAFINIL [Concomitant]
     Active Substance: MODAFINIL
  5. SINGULAIR PRIMAQUINE [Concomitant]
  6. VITAMINS [Concomitant]
     Active Substance: VITAMINS
  7. MONOPURE fish oil [Concomitant]
  8. AL COMPLEX BYRON WHITE FORMULA [Concomitant]
  9. HISTAQUEL [Concomitant]
  10. DETOX SUPPORT [Concomitant]
  11. ADRENAL SUPPORT [Concomitant]
     Active Substance: HOMEOPATHICS

REACTIONS (5)
  - Needle issue [None]
  - Tinnitus [None]
  - Dizziness [None]
  - Asthenia [None]
  - General physical health deterioration [None]

NARRATIVE: CASE EVENT DATE: 20230410
